FAERS Safety Report 9182015 (Version 1)
Quarter: 2013Q1

REPORT INFORMATION
  Report Type: Spontaneous
  Country: US (occurrence: US)
  Receive Date: 20130322
  Receipt Date: 20130322
  Transmission Date: 20140127
  Serious: Yes (Hospitalization)
  Sender: FDA-Public Use
  Company Number: US-BAYER-2013-034708

PATIENT
  Age: 38 Year
  Sex: Female
  Weight: 90 kg

DRUGS (25)
  1. YASMIN [Suspect]
     Indication: MIGRAINE
  2. LAMICTAL [Concomitant]
     Dosage: 200 MG, UNK
     Route: 048
     Dates: start: 20090311, end: 20090608
  3. EXCEDRIN [Concomitant]
     Indication: HEADACHE
     Dosage: UNK
     Route: 048
     Dates: start: 20090503
  4. TIZANIDINE [Concomitant]
     Dosage: 4 MG, HS
     Route: 048
     Dates: start: 20090503, end: 20090519
  5. SUMATRIPTAN SUCCINATE [Concomitant]
     Indication: MIGRAINE
     Dosage: 6 MG, UNK
     Route: 058
     Dates: start: 20090507
  6. SERTRALINE [Concomitant]
     Dosage: 100 MG, 100 MG 1 ? TABS IN AM INCREASE TO 2 PRE-MENSTRUALLY
     Route: 048
     Dates: start: 20090507, end: 20090508
  7. BUPROPION HYDROCHLORIDE [Concomitant]
     Dosage: 75 MG, 75 MG 2 TABLES IN AM, ONE MIDDAY AND ONE EVENING
     Route: 048
     Dates: start: 20090507, end: 20090509
  8. EPHEDRIN [Concomitant]
     Indication: MIGRAINE
     Dosage: 325-65-100 TAKE ONE Q HR AT ONSE OF HEADACHE UNTIL HA RELIEVED DO NOT EXCEED 5 CAPSULES IN 12 HRS
     Route: 048
     Dates: start: 20090507, end: 20090519
  9. DILAUDID [Concomitant]
     Indication: MIGRAINE
     Dosage: 2 MG, UNK
     Route: 030
     Dates: start: 20090508
  10. DILAUDID [Concomitant]
     Indication: PLEURITIC PAIN
  11. PHENERGAN [Concomitant]
     Indication: MIGRAINE
     Dosage: 25 MG, UNK
     Route: 030
     Dates: start: 20090508
  12. KETOROLAC [Concomitant]
     Indication: MIGRAINE
     Dosage: 60 MG, UNK
     Route: 030
     Dates: start: 20090508
  13. HYDROMORPHONE [Concomitant]
     Indication: MIGRAINE
     Dosage: 2 MG, 2MG Q4 HRS PRN FOR PAIN
     Route: 048
     Dates: start: 20090508
  14. HYDROMORPHONE [Concomitant]
     Indication: MIGRAINE
     Dosage: 2 MG, UNK
     Route: 030
  15. PROMETHAZINE [Concomitant]
     Indication: MIGRAINE
     Dosage: 25 MG, UNK
     Route: 030
     Dates: start: 20090508
  16. MIDRIN [Concomitant]
     Indication: MIGRAINE
     Dosage: 325-65-100 MG
     Route: 048
     Dates: start: 20090608
  17. RIZATRIPTAN [Concomitant]
     Indication: MIGRAINE
     Dosage: 5M DISSOLVE 1TABLET IN MOUTH ONSET OF MIGRAINE MAY REPEAT X 1,
     Route: 048
     Dates: start: 20090508, end: 20090519
  18. VERAPAMIL [Concomitant]
     Indication: MIGRAINE
     Dosage: 80 MG, TID
     Route: 048
     Dates: start: 20090519, end: 20090630
  19. NARATRIPTAN [Concomitant]
     Indication: MIGRAINE
     Dosage: 2.5 MG, TID
     Route: 048
     Dates: start: 20090519
  20. TRAZODONE [Concomitant]
     Indication: SLEEP DISORDER THERAPY
     Dosage: UNK
     Dates: start: 20090922
  21. IBUPROFEN [Concomitant]
  22. MORPHINE [Concomitant]
  23. ZOFRAN [Concomitant]
  24. SEASONALE [Concomitant]
  25. NUVARING [Concomitant]
     Indication: METRORRHAGIA

REACTIONS (1)
  - Pulmonary embolism [Recovered/Resolved]
